FAERS Safety Report 25892306 (Version 1)
Quarter: 2025Q4

REPORT INFORMATION
  Report Type: Spontaneous
  Country: US (occurrence: US)
  Receive Date: 20251007
  Receipt Date: 20251007
  Transmission Date: 20260117
  Serious: No
  Sender: ELI LILLY AND COMPANY
  Company Number: US-ELI_LILLY_AND_COMPANY-US202510005002

PATIENT
  Age: 65 Year

DRUGS (1)
  1. BASAGLAR [Suspect]
     Active Substance: INSULIN GLARGINE
     Indication: Product used for unknown indication
     Dosage: 22 U, UNKNOWN
     Route: 065

REACTIONS (1)
  - Incorrect dose administered [Unknown]
